FAERS Safety Report 24945197 (Version 3)
Quarter: 2025Q1

REPORT INFORMATION
  Report Type: Spontaneous
  Country: US (occurrence: US)
  Receive Date: 20250208
  Receipt Date: 20250317
  Transmission Date: 20250409
  Serious: No
  Sender: CSL BEHRING
  Company Number: US-BEH-2025194094

PATIENT
  Sex: Male

DRUGS (1)
  1. HIZENTRA [Suspect]
     Active Substance: HUMAN IMMUNOGLOBULIN G
     Indication: Primary immunodeficiency syndrome
     Dosage: 16 G, QOW
     Route: 058
     Dates: start: 2022

REACTIONS (3)
  - Fatigue [Unknown]
  - Myalgia [Unknown]
  - Monoclonal immunoglobulin present [Unknown]
